FAERS Safety Report 8346765-8 (Version None)
Quarter: 2012Q2

REPORT INFORMATION
  Report Type: 
  Country: None (occurrence: None)
  Receive Date: 20120509
  Receipt Date: 20120430
  Transmission Date: 20120825
  Serious: Yes (Other)
  Sender: FDA-Public Use
  Company Number: US-ASTRAZENECA-2012SE12804

PATIENT
  Age: 72 Year
  Sex: Female
  Weight: 84.8 kg

DRUGS (5)
  1. TOPROL-XL [Suspect]
     Route: 048
  2. YELLOW CREAM [Concomitant]
  3. MAGNESIUM OXIDE [Concomitant]
  4. SEROQUEL XR [Suspect]
     Indication: BIPOLAR DISORDER
     Route: 048
     Dates: start: 20090101
  5. DIVALPROEX SODIUM [Concomitant]

REACTIONS (10)
  - RETINAL HAEMORRHAGE [None]
  - RECTAL HAEMORRHAGE [None]
  - INSOMNIA [None]
  - RESPIRATORY TRACT INFECTION [None]
  - BRONCHITIS [None]
  - EYE DISORDER [None]
  - ACUTE SINUSITIS [None]
  - INTENTIONAL DRUG MISUSE [None]
  - PHARYNGEAL HAEMORRHAGE [None]
  - GLAUCOMA [None]
